FAERS Safety Report 13531720 (Version 2)
Quarter: 2017Q2

REPORT INFORMATION
  Report Type: Report from Study
  Country: AU (occurrence: AU)
  Receive Date: 20170510
  Receipt Date: 20170524
  Transmission Date: 20170830
  Serious: Yes (Hospitalization, Other)
  Sender: FDA-Public Use
  Company Number: AU-SUN PHARMACEUTICAL INDUSTRIES LTD-2017RR-139928

PATIENT
  Age: 82 Year
  Sex: Male

DRUGS (1)
  1. BUPRENORPHINE. [Suspect]
     Active Substance: BUPRENORPHINE
     Indication: PAIN
     Dosage: 1.4 MG, 7X 200 ?G
     Route: 060

REACTIONS (2)
  - Major depression [Recovering/Resolving]
  - Respiratory depression [Recovering/Resolving]
